FAERS Safety Report 5169743-9 (Version None)
Quarter: 2006Q4

REPORT INFORMATION
  Report Type: 
  Country: None (occurrence: None)
  Receive Date: 20061201
  Receipt Date: 20061120
  Transmission Date: 20070319
  Serious: No
  Sender: FDA-Public Use
  Company Number: 2006108758

PATIENT
  Age: 74 Year
  Sex: Male

DRUGS (1)
  1. CAVERJECT [Suspect]
     Dosage: 40 MCG

REACTIONS (1)
  - DRUG ADMINISTRATION ERROR [None]
